FAERS Safety Report 9956349 (Version 1)
Quarter: 2014Q1

REPORT INFORMATION
  Report Type: Spontaneous
  Country: US (occurrence: US)
  Receive Date: 20140304
  Receipt Date: 20140304
  Transmission Date: 20141002
  Serious: Yes (Other)
  Sender: FDA-Public Use
  Company Number: US-UCBSA-113511

PATIENT
  Age: 27 Year
  Sex: Female

DRUGS (6)
  1. CIMZIA [Suspect]
     Indication: PSORIATIC ARTHROPATHY
     Dosage: UNKNOWN DOSE
     Dates: start: 20131014
  2. ENBREL [Suspect]
     Indication: PSORIATIC ARTHROPATHY
     Dates: start: 20120928, end: 20131014
  3. CALCIUM [Concomitant]
  4. FOLIC ACID [Concomitant]
  5. PRENATAL VITAMINS [Concomitant]
  6. VITAMIN B12 [Concomitant]

REACTIONS (5)
  - Caesarean section [Unknown]
  - Urticaria [Unknown]
  - Injection site urticaria [Unknown]
  - Exposure during pregnancy [Recovered/Resolved]
  - Breast feeding [Recovered/Resolved]
